FAERS Safety Report 18155454 (Version 1)
Quarter: 2020Q3

REPORT INFORMATION
  Report Type: Spontaneous
  Country: US (occurrence: US)
  Receive Date: 20200814
  Receipt Date: 20200814
  Transmission Date: 20201103
  Serious: Yes (Other)
  Sender: FDA-Public Use
  Company Number: None

PATIENT
  Age: 24 Year
  Sex: Female

DRUGS (2)
  1. MISOPROSTOL. [Concomitant]
     Active Substance: MISOPROSTOL
     Dates: start: 20200806, end: 20200806
  2. MIFEPRISTONE [Suspect]
     Active Substance: MIFEPRISTONE
     Indication: ABORTION
     Dosage: ?          OTHER FREQUENCY:ONCE;?
     Route: 048
     Dates: start: 20200805, end: 20200805

REACTIONS (3)
  - Abortion induced [None]
  - Induced abortion failed [None]
  - Uterine dilation and curettage [None]

NARRATIVE: CASE EVENT DATE: 20200814
